FAERS Safety Report 6697419-5 (Version None)
Quarter: 2010Q2

REPORT INFORMATION
  Report Type: 
  Country: None (occurrence: None)
  Receive Date: 20100426
  Receipt Date: 20100419
  Transmission Date: 20101027
  Serious: Yes (Other)
  Sender: FDA-Public Use
  Company Number: CHPA2010US06872

PATIENT
  Age: 70 Year
  Sex: Female
  Weight: 70.295 kg

DRUGS (3)
  1. BENEFIBER W/ WHEAT DEXTRIN (NCH) [Suspect]
     Indication: FAECES HARD
     Dosage: 3 TSP, QD
     Route: 048
  2. BENEFIBER W/ WHEAT DEXTRIN (NCH) [Suspect]
     Indication: CONSTIPATION
  3. BENEFIBER W/ WHEAT DEXTRIN (NCH) [Suspect]
     Indication: HAEMORRHOIDS

REACTIONS (7)
  - ABDOMINAL DISCOMFORT [None]
  - DIARRHOEA [None]
  - GASTROOESOPHAGEAL REFLUX DISEASE [None]
  - INCORRECT DOSE ADMINISTERED [None]
  - NAUSEA [None]
  - OFF LABEL USE [None]
  - WRONG TECHNIQUE IN DRUG USAGE PROCESS [None]
